FAERS Safety Report 6325717-3 (Version None)
Quarter: 2009Q3

REPORT INFORMATION
  Report Type: 
  Country: None (occurrence: None)
  Receive Date: 20090824
  Receipt Date: 20090717
  Transmission Date: 20100115
  Serious: No
  Sender: FDA-Public Use
  Company Number: US-ABBOTT-09P-163-0586421-00

PATIENT
  Age: 49 Year
  Sex: Male

DRUGS (2)
  1. NIASPAN [Suspect]
     Indication: BLOOD CHOLESTEROL INCREASED
     Dates: start: 20090419, end: 20090701
  2. NIASPAN [Suspect]
     Route: 048
     Dates: start: 20090701

REACTIONS (1)
  - BLOOD CREATINE PHOSPHOKINASE INCREASED [None]
